FAERS Safety Report 5662553-5 (Version None)
Quarter: 2008Q1

REPORT INFORMATION
  Report Type: 
  Country: None (occurrence: None)
  Receive Date: 20080310
  Receipt Date: 20080310
  Transmission Date: 20080703
  Serious: Yes (Other)
  Sender: FDA-Public Use
  Company Number: None

PATIENT
  Age: 5 Year
  Sex: Female
  Weight: 19.0511 kg

DRUGS (1)
  1. GLYCOLAX [Suspect]
     Indication: CONSTIPATION
     Dosage: 8 GRAMS ONCE DAILY PO
     Route: 048
     Dates: start: 20071202, end: 20080216

REACTIONS (2)
  - IRRITABILITY [None]
  - OBSESSIVE-COMPULSIVE DISORDER [None]
